FAERS Safety Report 5147128-9 (Version None)
Quarter: 2006Q4

REPORT INFORMATION
  Report Type: 
  Country: None (occurrence: None)
  Receive Date: 20061103
  Receipt Date: 20061019
  Transmission Date: 20070319
  Serious: Yes (Hospitalization)
  Sender: FDA-Public Use
  Company Number: ALA_0012_2006

PATIENT
  Age: 31 Year
  Sex: Female

DRUGS (1)
  1. MESALAZINE [Suspect]
     Indication: COLITIS ULCERATIVE
     Dosage: 4 G QDAY UNK

REACTIONS (5)
  - ANTINUCLEAR ANTIBODY INCREASED [None]
  - CRYPTOGENIC ORGANISING PNEUMONIA [None]
  - DRUG EXPOSURE DURING PREGNANCY [None]
  - PLEURAL EFFUSION [None]
  - THERAPY NON-RESPONDER [None]
